FAERS Safety Report 9121513 (Version 1)
Quarter: 2013Q1

REPORT INFORMATION
  Report Type: Spontaneous
  Country: GB (occurrence: GB)
  Receive Date: 20130227
  Receipt Date: 20130227
  Transmission Date: 20140127
  Serious: Yes (Hospitalization)
  Sender: FDA-Public Use
  Company Number: GB-RANBAXY-2013R1-65423

PATIENT
  Age: 31 Year
  Sex: 0

DRUGS (1)
  1. CEFALEXIN [Suspect]
     Indication: URINARY TRACT INFECTION
     Dosage: 500 MG, TID
     Route: 048
     Dates: start: 20110415, end: 20110422

REACTIONS (2)
  - Clostridium test positive [Recovered/Resolved]
  - Diarrhoea [Unknown]
